FAERS Safety Report 7055955-6 (Version None)
Quarter: 2010Q4

REPORT INFORMATION
  Report Type: 
  Country: None (occurrence: None)
  Receive Date: 20101021
  Receipt Date: 20101015
  Transmission Date: 20110411
  Serious: Yes (Hospitalization, Congenital Anomaly)
  Sender: FDA-Public Use
  Company Number: A0847389A

PATIENT
  Sex: Male

DRUGS (6)
  1. PAXIL [Suspect]
     Dosage: 10MG AT NIGHT
  2. GABAPENTIN [Concomitant]
  3. NAPROXEN [Concomitant]
  4. LORTAB [Concomitant]
  5. XANAX [Concomitant]
  6. SOMA [Concomitant]

REACTIONS (3)
  - ATRIAL SEPTAL DEFECT [None]
  - CONGENITAL INGUINAL HERNIA [None]
  - DRUG EXPOSURE DURING PREGNANCY [None]
